FAERS Safety Report 10161824 (Version 1)
Quarter: 2014Q2

REPORT INFORMATION
  Report Type: Spontaneous
  Country: US (occurrence: None)
  Receive Date: 20140507
  Receipt Date: 20140507
  Transmission Date: 20141212
  Serious: Yes (Hospitalization)
  Sender: FDA-Public Use
  Company Number: UTC-041109

PATIENT
  Age: 74 Year
  Sex: Female
  Weight: 110.9 kg

DRUGS (3)
  1. REMODULIN (10 MILLIGRAM/MILLILITERS, INJECTION FOR INFUSION) (TREPROSTINIL SODIUM) [Suspect]
     Indication: PULMONARY ARTERIAL HYPERTENSION
     Dosage: 110.88 UG/KG ((0.077 UG/KG,1 IN 1 MIN)
     Route: 041
     Dates: start: 20110902
  2. TRACLEER (BOSENTAN) [Concomitant]
  3. WARFARIN (WARFARIN) [Concomitant]

REACTIONS (18)
  - Syncope [None]
  - Loss of consciousness [None]
  - Dizziness [None]
  - Fatigue [None]
  - Medical device complication [None]
  - Generalised erythema [None]
  - Diarrhoea [None]
  - Nausea [None]
  - Vomiting [None]
  - Asthenia [None]
  - Chest pain [None]
  - Lethargy [None]
  - Drug dose omission [None]
  - Fall [None]
  - Decreased activity [None]
  - Balance disorder [None]
  - Overdose [None]
  - Headache [None]
